FAERS Safety Report 4632783-X (Version None)
Quarter: 2005Q2

REPORT INFORMATION
  Report Type: 
  Country: None (occurrence: None)
  Receive Date: 20050412
  Receipt Date: 20050408
  Transmission Date: 20051028
  Serious: Yes (Hospitalization, Other)
  Sender: FDA-Public Use
  Company Number: PHBS2005ES04938

PATIENT
  Age: 65 Year
  Sex: Male

DRUGS (2)
  1. LEPONEX [Suspect]
     Indication: SCHIZOPHRENIA
     Route: 048
     Dates: start: 20010101, end: 20050101
  2. ZYPREXA [Concomitant]
     Route: 065

REACTIONS (4)
  - COLITIS [None]
  - DIARRHOEA [None]
  - SYNCOPE [None]
  - WEIGHT DECREASED [None]
